FAERS Safety Report 7308691-2 (Version None)
Quarter: 2011Q1

REPORT INFORMATION
  Report Type: 
  Country: None (occurrence: None)
  Receive Date: 20110223
  Receipt Date: 20110210
  Transmission Date: 20110831
  Serious: Yes (Other)
  Sender: FDA-Public Use
  Company Number: PHHY2011US11244

PATIENT
  Age: 66 Year
  Sex: Male

DRUGS (10)
  1. RANITIDINE HCL [Concomitant]
     Dosage: 150 MG, UNK
  2. DIOVAN [Suspect]
     Dosage: 160 MG, UNK
  3. METFORMIN [Concomitant]
     Dosage: 500 MG, UNK
  4. MELOXICAM [Concomitant]
     Dosage: 15 MG, UNK
  5. HUMIRA [Concomitant]
  6. POTASSIUM CHLORIDE [Concomitant]
     Dosage: 10 MG, UNK
  7. MULTI-VIT [Concomitant]
  8. ACETAMINOPHEN AND HYDROCODONE BITARTRATE [Concomitant]
  9. LIPITOR [Concomitant]
     Dosage: 20 MG, UNK
  10. LEXAPRO [Concomitant]
     Dosage: 10 MG, UNK

REACTIONS (1)
  - RHEUMATOID ARTHRITIS [None]
